FAERS Safety Report 4676996-X (Version None)
Quarter: 2005Q2

REPORT INFORMATION
  Report Type: 
  Country: None (occurrence: None)
  Receive Date: 20050526
  Receipt Date: 20050517
  Transmission Date: 20051028
  Serious: Yes (Other)
  Sender: FDA-Public Use
  Company Number: 2005076801

PATIENT
  Age: 73 Year
  Sex: Male

DRUGS (19)
  1. EPLERENONE (EPLERENONE) [Suspect]
     Indication: ANGINA PECTORIS
     Dosage: (25 MG), ORAL
     Route: 048
     Dates: start: 20050401, end: 20050401
  2. NICORANDIL (NICORANDIL) [Suspect]
     Indication: ILL-DEFINED DISORDER
     Dosage: 20 MG (10 MG, 2 IN 1 D)
     Dates: start: 20050425
  3. GENTAMICIN [Suspect]
  4. CITALOPRAM [Concomitant]
  5. DIGOXIN [Concomitant]
  6. PANTOPRAZOLE (PATOPRAZOLE) [Concomitant]
  7. SPRINOLACTONE (SPIRONOLACTONE) [Concomitant]
  8. LACTULOSE [Concomitant]
  9. BEZAFIBRATE (BEZAFIBRATE) [Concomitant]
  10. QUINIDINE SULFATE [Concomitant]
  11. RAMIPRIL [Concomitant]
  12. BISOPROLOL (BISOPROLOL) [Concomitant]
  13. FUROSEMIDE [Concomitant]
  14. SALAMOL (SALBUTAMOL SULFATE) [Concomitant]
  15. OPTICROM (CROMOGLICATE SODIUM) [Concomitant]
  16. SERETID (FLUTICASONE PROPIONATE, SALMETEROL XINAFOATE) [Concomitant]
  17. WARFARIN SODIUM [Concomitant]
  18. CEFRADINE  (CEFRADINE) [Concomitant]
  19. ISOSORBIDE MONONITRATE [Concomitant]

REACTIONS (3)
  - DYSPNOEA [None]
  - FLUSHING [None]
  - ORTHOSTATIC HYPOTENSION [None]
